FAERS Safety Report 10820631 (Version 1)
Quarter: 2015Q1

REPORT INFORMATION
  Report Type: Spontaneous
  Country: JP (occurrence: None)
  Receive Date: 20150213
  Receipt Date: 20150213
  Transmission Date: 20150721
  Serious: Yes (Other)
  Sender: FDA-Public Use
  Company Number: ABR_01972_2015

PATIENT
  Age: 66 Year
  Sex: Female

DRUGS (1)
  1. GLIADEL [Suspect]
     Active Substance: CARMUSTINE
     Indication: MALIGNANT GLIOMA
     Dates: start: 20150123

REACTIONS (3)
  - Seizure [None]
  - Brain oedema [None]
  - Aphasia [None]

NARRATIVE: CASE EVENT DATE: 20150123
